FAERS Safety Report 4288664-7 (Version None)
Quarter: 2004Q1

REPORT INFORMATION
  Report Type: 
  Country: None (occurrence: None)
  Receive Date: 20040205
  Receipt Date: 20040114
  Transmission Date: 20041129
  Serious: Yes (Death, Hospitalization)
  Sender: FDA-Public Use
  Company Number: F01200301267

PATIENT
  Age: 64 Year
  Sex: Male

DRUGS (2)
  1. (OXALIPLATIN) - SOLUTION - 130 MG/M2 [Suspect]
     Indication: COLORECTAL CANCER
     Dosage: 130 MG/M2 Q3W; INTRAVENOUS NOS
     Route: 042
     Dates: start: 20031029, end: 20031029
  2. (CAPECITABINE) - TABLET- 1000 MG/M2 [Suspect]
     Dosage: 1000 MG/M2 TWICE DAILY FROM D1 TO D15, Q3W; ORAL
     Route: 048
     Dates: start: 20031029, end: 20031106

REACTIONS (14)
  - ANOREXIA [None]
  - ASTHENIA [None]
  - BLOOD BILIRUBIN INCREASED [None]
  - DEHYDRATION [None]
  - DIARRHOEA [None]
  - DYSPNOEA [None]
  - GLOMERULAR FILTRATION RATE DECREASED [None]
  - HEPATIC ENZYME INCREASED [None]
  - HYPOKALAEMIA [None]
  - METABOLIC ACIDOSIS [None]
  - NAUSEA [None]
  - RENAL FAILURE [None]
  - TREMOR [None]
  - VOMITING [None]
